FAERS Safety Report 20642775 (Version 1)
Quarter: 2022Q1

REPORT INFORMATION
  Report Type: Spontaneous
  Country: US (occurrence: None)
  Receive Date: 20220325
  Receipt Date: 20220325
  Transmission Date: 20220423
  Serious: Yes (Hospitalization)
  Sender: FDA-Public Use
  Company Number: None

PATIENT
  Sex: Male

DRUGS (16)
  1. XOLAIR [Suspect]
     Active Substance: OMALIZUMAB
     Indication: Asthma
     Dosage: OTHER QUANTITY : 75MG/0.5ML;?FREQUENCY : MONTHLY;?
     Route: 058
     Dates: start: 20201029
  2. ALBUTEROL AER HFA [Concomitant]
  3. ALBUTEROL SULFATE [Concomitant]
     Active Substance: ALBUTEROL SULFATE
  4. BREO ELLIPTA INH [Concomitant]
  5. CYCLOBENZAPRINE [Concomitant]
     Active Substance: CYCLOBENZAPRINE
  6. FAMOTIDINE [Concomitant]
     Active Substance: FAMOTIDINE
  7. GABAPENTIN [Concomitant]
     Active Substance: GABAPENTIN
  8. ACETAMINOPHEN\HYDROCODONE [Concomitant]
     Active Substance: ACETAMINOPHEN\HYDROCODONE
  9. IPRATROPIUM [Concomitant]
     Active Substance: IPRATROPIUM
  10. LEVETIRACETAM [Concomitant]
     Active Substance: LEVETIRACETAM
  11. OMEPRAZOLE SODIUM [Concomitant]
     Active Substance: OMEPRAZOLE SODIUM
  12. ONDANSETRON [Concomitant]
     Active Substance: ONDANSETRON
  13. PREDNISONE [Concomitant]
     Active Substance: PREDNISONE
  14. SULFASALAZINE [Concomitant]
     Active Substance: SULFASALAZINE
  15. TRELEGY AER ELLIPTA [Concomitant]
  16. XOLAIR [Concomitant]
     Active Substance: OMALIZUMAB

REACTIONS (4)
  - Condition aggravated [None]
  - Product use issue [None]
  - Impaired quality of life [None]
  - Product dose omission issue [None]
